FAERS Safety Report 10398341 (Version 1)
Quarter: 2014Q3

REPORT INFORMATION
  Report Type: Spontaneous
  Country: US (occurrence: None)
  Receive Date: 20140818
  Receipt Date: 20140818
  Transmission Date: 20150326
  Serious: No
  Sender: FDA-Public Use
  Company Number: None

PATIENT
  Sex: Female
  Weight: 146.51 kg

DRUGS (1)
  1. BUPROPION [Suspect]
     Active Substance: BUPROPION
     Indication: DEPRESSION
     Dosage: 150MG 2XDAY P.O.?APPROX. 2008 1MO
     Route: 048
     Dates: start: 2008

REACTIONS (3)
  - Tachyphrenia [None]
  - Feeling jittery [None]
  - Product substitution issue [None]

NARRATIVE: CASE EVENT DATE: 2008
